FAERS Safety Report 24266721 (Version 1)
Quarter: 2024Q3

REPORT INFORMATION
  Report Type: Spontaneous
  Country: US (occurrence: None)
  Receive Date: 20240830
  Receipt Date: 20240830
  Transmission Date: 20241017
  Serious: No
  Sender: AXSOME THERAPEUTICS
  Company Number: US-Axsome Therapeutics, Inc.-AXS202406-000874

PATIENT
  Age: 37 Year
  Sex: Female
  Weight: 77 kg

DRUGS (3)
  1. AUVELITY [Suspect]
     Active Substance: BUPROPION HYDROCHLORIDE\DEXTROMETHORPHAN HYDROBROMIDE
     Indication: Major depression
     Dosage: UNK
     Route: 065
     Dates: start: 20240604, end: 202406
  2. Benadryl with Naproxen [Concomitant]
     Indication: Product used for unknown indication
     Route: 048
  3. Bactirim Septra [Concomitant]
     Indication: Product used for unknown indication
     Route: 048

REACTIONS (5)
  - Skin lesion [Unknown]
  - Scab [Unknown]
  - Dyskinesia [Not Recovered/Not Resolved]
  - Pruritus [Not Recovered/Not Resolved]
  - Rash [Unknown]

NARRATIVE: CASE EVENT DATE: 20240601
